FAERS Safety Report 8180396-8 (Version None)
Quarter: 2012Q1

REPORT INFORMATION
  Report Type: 
  Country: None (occurrence: None)
  Receive Date: 20120229
  Receipt Date: 20120220
  Transmission Date: 20120608
  Serious: Yes (Hospitalization, Disabling, Other)
  Sender: FDA-Public Use
  Company Number: 2010SP054733

PATIENT
  Age: 29 Year
  Sex: Female
  Weight: 89.8122 kg

DRUGS (2)
  1. MULTI-VITAMINS [Concomitant]
  2. NUVARING [Suspect]
     Indication: CONTRACEPTION
     Dosage: QM;VAG
     Route: 067
     Dates: start: 20080701, end: 20081028

REACTIONS (29)
  - DEPRESSION [None]
  - VULVAL ABSCESS [None]
  - NEPHROLITHIASIS [None]
  - BALANCE DISORDER [None]
  - DEEP VEIN THROMBOSIS [None]
  - CERVICITIS TRICHOMONAL [None]
  - ANXIETY [None]
  - FALL [None]
  - HYPERCOAGULATION [None]
  - RENAL TUBULAR ACIDOSIS [None]
  - FLUSHING [None]
  - LABOUR INDUCTION [None]
  - PERINEAL LACERATION [None]
  - PERICARDIAL EFFUSION [None]
  - RENAL CYST [None]
  - DIZZINESS [None]
  - WHEEZING [None]
  - FACE INJURY [None]
  - BACK PAIN [None]
  - HYPERGLYCAEMIA [None]
  - FUNGAL INFECTION [None]
  - MATERNAL EXPOSURE BEFORE PREGNANCY [None]
  - PYELONEPHRITIS [None]
  - URINARY TRACT INFECTION [None]
  - NORMOCHROMIC NORMOCYTIC ANAEMIA [None]
  - PULMONARY EMBOLISM [None]
  - ARTHROPOD BITE [None]
  - ASSISTED DELIVERY [None]
  - HORDEOLUM [None]
